FAERS Safety Report 10303481 (Version 1)
Quarter: 2014Q3

REPORT INFORMATION
  Report Type: Spontaneous
  Country: GH (occurrence: GH)
  Receive Date: 20140714
  Receipt Date: 20140714
  Transmission Date: 20150326
  Serious: Yes (Disabling)
  Sender: FDA-Public Use
  Company Number: PHHY2014GH084727

PATIENT
  Age: 50 Year
  Sex: Female

DRUGS (4)
  1. GENTAMICIN [Suspect]
     Active Substance: GENTAMICIN
     Dosage: 20 MG, IN 0.5ML
     Route: 057
  2. LIDOCAINE. [Suspect]
     Active Substance: LIDOCAINE
     Indication: ANAESTHESIA
     Dosage: 5MLS OF 2% XYLOCAINE WITH 1 IN 100000 ADRENALINE FOR ANAESTHESIA
     Route: 056
  3. DEXAMETHASONE. [Concomitant]
     Active Substance: DEXAMETHASONE
     Dosage: 1MG IN 0.5ML INJECTION
  4. ADRENALINE [Suspect]
     Active Substance: EPINEPHRINE
     Indication: ANAESTHESIA

REACTIONS (4)
  - Blindness [Not Recovered/Not Resolved]
  - Macular pigmentation [Unknown]
  - Optic atrophy [Not Recovered/Not Resolved]
  - Pupillary reflex impaired [Unknown]
